FAERS Safety Report 5910784-9 (Version None)
Quarter: 2008Q4

REPORT INFORMATION
  Report Type: 
  Country: None (occurrence: None)
  Receive Date: 20081007
  Receipt Date: 20080501
  Transmission Date: 20090506
  Serious: No
  Sender: FDA-Public Use
  Company Number: US-ASTRAZENECA-2008UW08994

PATIENT
  Age: 78 Year
  Sex: Female
  Weight: 83.9 kg

DRUGS (6)
  1. ARIMIDEX [Suspect]
     Indication: BREAST CANCER
     Route: 048
     Dates: start: 20071115, end: 20080410
  2. LESCOL [Concomitant]
  3. DIOVAN [Concomitant]
  4. SINGULAIR [Concomitant]
  5. LEXAPRO [Concomitant]
  6. MELOXICAM [Concomitant]

REACTIONS (3)
  - GAIT DISTURBANCE [None]
  - ILL-DEFINED DISORDER [None]
  - PAIN IN EXTREMITY [None]
